FAERS Safety Report 5379779-0 (Version None)
Quarter: 2007Q3

REPORT INFORMATION
  Report Type: 
  Country: None (occurrence: None)
  Receive Date: 20070706
  Receipt Date: 20070627
  Transmission Date: 20080115
  Serious: Yes (Disabling, Other)
  Sender: FDA-Public Use
  Company Number: PHBS2007JP10285

PATIENT
  Age: 68 Year
  Sex: Male
  Weight: 48 kg

DRUGS (3)
  1. DIOVAN [Suspect]
     Indication: HYPERTENSION
     Dosage: 80 MG, BID
     Route: 048
     Dates: start: 20070516, end: 20070516
  2. DIOVAN [Suspect]
     Dosage: 160 MG, BID
     Route: 048
     Dates: start: 20070517, end: 20070607
  3. AMIODARONE HCL [Suspect]
     Dosage: UNK, UNK
     Route: 048
     Dates: start: 20070424, end: 20070604

REACTIONS (25)
  - ALANINE AMINOTRANSFERASE INCREASED [None]
  - ASPARTATE AMINOTRANSFERASE INCREASED [None]
  - BLOOD ALBUMIN DECREASED [None]
  - BLOOD ALBUMIN INCREASED [None]
  - BLOOD CHLORIDE INCREASED [None]
  - BLOOD CREATINE PHOSPHOKINASE INCREASED [None]
  - BLOOD CREATININE INCREASED [None]
  - BLOOD LACTATE DEHYDROGENASE INCREASED [None]
  - BLOOD SODIUM INCREASED [None]
  - C-REACTIVE PROTEIN INCREASED [None]
  - CELL MARKER [None]
  - COMPUTERISED TOMOGRAM ABNORMAL [None]
  - GAMMA-GLUTAMYLTRANSFERASE INCREASED [None]
  - HAEMATOCRIT DECREASED [None]
  - HAEMOGLOBIN DECREASED [None]
  - INTERSTITIAL LUNG DISEASE [None]
  - INTUBATION [None]
  - LIFE SUPPORT [None]
  - MEAN CELL VOLUME ABNORMAL [None]
  - OXYGEN SATURATION DECREASED [None]
  - PLATELET COUNT DECREASED [None]
  - PROTEIN TOTAL DECREASED [None]
  - RED BLOOD CELL COUNT DECREASED [None]
  - WHITE BLOOD CELL COUNT INCREASED [None]
  - X-RAY ABNORMAL [None]
